FAERS Safety Report 5149203-1 (Version None)
Quarter: 2006Q4

REPORT INFORMATION
  Report Type: 
  Country: None (occurrence: None)
  Receive Date: 20061113
  Receipt Date: 20060913
  Transmission Date: 20070319
  Serious: No
  Sender: FDA-Public Use
  Company Number: US-GLAXOSMITHKLINE-A0620046A

PATIENT
  Age: 27 Year
  Sex: Female

DRUGS (3)
  1. COREG [Suspect]
     Indication: CARDIOMYOPATHY
     Dosage: 6.25MG TWICE PER DAY
     Route: 048
     Dates: start: 20060601
  2. DIGOXIN [Concomitant]
  3. IRON SUPPLEMENT [Concomitant]

REACTIONS (2)
  - CHEST PAIN [None]
  - URTICARIA [None]
